FAERS Safety Report 5492258-5 (Version None)
Quarter: 2007Q4

REPORT INFORMATION
  Report Type: 
  Country: None (occurrence: None)
  Receive Date: 20071022
  Receipt Date: 20071018
  Transmission Date: 20080405
  Serious: Yes (Life-Threatening, Hospitalization)
  Sender: FDA-Public Use
  Company Number: IT-ASTRAZENECA-2007SE05580

PATIENT
  Age: 82 Year
  Sex: Female

DRUGS (5)
  1. TENORETIC 100 [Suspect]
     Indication: ESSENTIAL HYPERTENSION
     Dosage: 100+25 MG
     Route: 048
     Dates: start: 20060930, end: 20071012
  2. KARVEA [Suspect]
     Indication: ESSENTIAL HYPERTENSION
     Dates: start: 20060731, end: 20071012
  3. LASIX [Suspect]
     Indication: ESSENTIAL HYPERTENSION
     Route: 048
     Dates: start: 20060930, end: 20071012
  4. NORVASC [Concomitant]
     Indication: ESSENTIAL HYPERTENSION
     Route: 048
  5. VOLTAREN [Concomitant]
     Indication: OSTEOARTHRITIS
     Route: 048

REACTIONS (2)
  - HYPOVOLAEMIC SHOCK [None]
  - RENAL FAILURE ACUTE [None]
